FAERS Safety Report 6098015-3 (Version None)
Quarter: 2009Q1

REPORT INFORMATION
  Report Type: 
  Country: None (occurrence: None)
  Receive Date: 20090227
  Receipt Date: 20090218
  Transmission Date: 20090719
  Serious: Yes (Hospitalization)
  Sender: FDA-Public Use
  Company Number: IT-ASTRAZENECA-2009SE00532

PATIENT
  Age: 13864 Day
  Sex: Female

DRUGS (4)
  1. SEROQUEL XR [Suspect]
     Indication: SCHIZOPHRENIFORM DISORDER
     Route: 048
     Dates: start: 20081017, end: 20081017
  2. SEROQUEL XR [Suspect]
     Route: 048
     Dates: start: 20081018, end: 20081019
  3. SEROQUEL XR [Suspect]
     Route: 048
     Dates: start: 20081020, end: 20090209
  4. DEPAKOTE [Concomitant]
     Indication: EPILEPSY
     Route: 048

REACTIONS (1)
  - CONFUSIONAL STATE [None]
